FAERS Safety Report 8053681-8 (Version None)
Quarter: 2012Q1

REPORT INFORMATION
  Report Type: 
  Country: None (occurrence: None)
  Receive Date: 20120118
  Receipt Date: 20120110
  Transmission Date: 20120608
  Serious: Yes (Hospitalization, Other)
  Sender: FDA-Public Use
  Company Number: PHHY2011AU109615

PATIENT
  Age: 61 Year
  Sex: Female

DRUGS (4)
  1. CLOZAPINE [Suspect]
     Indication: SCHIZOAFFECTIVE DISORDER
     Dosage: 400 MG
     Dates: start: 19940101
  2. VALPROATE SODIUM [Concomitant]
     Dosage: 1500 MG/DAY
  3. CLOZAPINE [Suspect]
     Dosage: 175 MG (50 MG MANE, 125 MG NOCTE),
  4. ARIPIPRAZOLE [Concomitant]
     Dosage: 30 MG, UNK

REACTIONS (8)
  - DIABETIC ENCEPHALOPATHY [None]
  - URINARY TRACT INFECTION [None]
  - AGITATION [None]
  - MYOCARDIAL INFARCTION [None]
  - ELECTROCARDIOGRAM QT PROLONGED [None]
  - CONFUSIONAL STATE [None]
  - TYPE 2 DIABETES MELLITUS [None]
  - CATATONIA [None]
